FAERS Safety Report 15367663 (Version 2)
Quarter: 2018Q3

REPORT INFORMATION
  Report Type: Report from Study
  Country: US (occurrence: US)
  Receive Date: 20180910
  Receipt Date: 20180921
  Transmission Date: 20181010
  Serious: Yes (Other)
  Sender: FDA-Public Use
  Company Number: US-RETROPHIN, INC.-2018RTN00041

PATIENT
  Age: 1 Year
  Sex: Male

DRUGS (1)
  1. CHOLBAM [Suspect]
     Active Substance: CHOLIC ACID
     Indication: CEREBROHEPATORENAL SYNDROME
     Dosage: 150 MG, 1X/DAY
     Route: 048
     Dates: start: 201808, end: 20180826

REACTIONS (2)
  - Staphylococcal infection [Unknown]
  - Lip swelling [Unknown]

NARRATIVE: CASE EVENT DATE: 201808
